FAERS Safety Report 5088822-8 (Version None)
Quarter: 2006Q3

REPORT INFORMATION
  Report Type: 
  Country: None (occurrence: None)
  Receive Date: 20060824
  Receipt Date: 20060824
  Transmission Date: 20061208
  Serious: Yes (Hospitalization)
  Sender: FDA-Public Use
  Company Number: None

PATIENT
  Age: 73 Year
  Sex: Female
  Weight: 61.4 kg

DRUGS (5)
  1. DILAUDID [Suspect]
     Indication: HERPES ZOSTER
     Dates: start: 20060611, end: 20060821
  2. DILAUDID [Suspect]
     Indication: PAIN
     Dates: start: 20060611, end: 20060821
  3. BUPIVACAINE [Suspect]
     Indication: HERPES ZOSTER
     Dates: start: 20060611, end: 20060821
  4. BUPIVACAINE [Suspect]
     Indication: PAIN
     Dates: start: 20060611, end: 20060821
  5. CADD PRIZM PUMP  SMITH MEDICAL [Suspect]

REACTIONS (4)
  - CHEST PAIN [None]
  - DEVICE MALFUNCTION [None]
  - DRUG WITHDRAWAL SYNDROME [None]
  - MEDICATION ERROR [None]
